FAERS Safety Report 14374317 (Version 4)
Quarter: 2018Q2

REPORT INFORMATION
  Report Type: Report from Study
  Country: JP (occurrence: JP)
  Receive Date: 20180111
  Receipt Date: 20180416
  Transmission Date: 20180711
  Serious: Yes (Death)
  Sender: FDA-Public Use
  Company Number: JP-TAKEDA-2018TUS000547

PATIENT
  Age: 65 Year
  Sex: Male
  Weight: 45 kg

DRUGS (6)
  1. PONATINIB [Suspect]
     Active Substance: PONATINIB
     Indication: CHRONIC MYELOID LEUKAEMIA
     Dosage: 15 MG, UNK
     Route: 048
     Dates: start: 20161206, end: 20170109
  2. PONATINIB [Suspect]
     Active Substance: PONATINIB
     Dosage: 30 MG, UNK
     Route: 048
     Dates: start: 20170110, end: 20170305
  3. PONATINIB [Suspect]
     Active Substance: PONATINIB
     Dosage: 45 MG, UNK
     Route: 048
     Dates: start: 20170418, end: 201711
  4. IMATINIB [Concomitant]
     Active Substance: IMATINIB
     Indication: CHRONIC MYELOID LEUKAEMIA
     Dosage: UNK
     Route: 065
  5. SPRYCEL [Concomitant]
     Active Substance: DASATINIB
     Indication: CHRONIC MYELOID LEUKAEMIA
     Dosage: UNK
     Route: 065
  6. PONATINIB [Suspect]
     Active Substance: PONATINIB
     Dosage: 30 MG, UNK
     Route: 048
     Dates: start: 20170307, end: 20170417

REACTIONS (3)
  - Hepatic function abnormal [Not Recovered/Not Resolved]
  - Hepatic function abnormal [Recovering/Resolving]
  - Sudden death [Fatal]

NARRATIVE: CASE EVENT DATE: 2017
